FAERS Safety Report 11380993 (Version 1)
Quarter: 2015Q3

REPORT INFORMATION
  Report Type: Spontaneous
  Country: US (occurrence: US)
  Receive Date: 20150814
  Receipt Date: 20150814
  Transmission Date: 20151125
  Serious: No
  Sender: FDA-Public Use
  Company Number: US-BAYER-2015-400255

PATIENT
  Age: 6 Year
  Sex: Male

DRUGS (1)
  1. GADAVIST [Suspect]
     Active Substance: GADOBUTROL
     Indication: NUCLEAR MAGNETIC RESONANCE IMAGING BRAIN
     Dosage: 4.5 ML, ONCE
     Route: 042
     Dates: start: 20150812, end: 20150812

REACTIONS (1)
  - Overdose [None]

NARRATIVE: CASE EVENT DATE: 20150812
